FAERS Safety Report 9321652 (Version 1)
Quarter: 2013Q2

REPORT INFORMATION
  Report Type: Spontaneous
  Country: US (occurrence: US)
  Receive Date: 20130531
  Receipt Date: 20130531
  Transmission Date: 20140414
  Serious: No
  Sender: FDA-Public Use
  Company Number: US-BAYER-2013-066848

PATIENT
  Age: 81 Year
  Sex: Female
  Weight: 53.52 kg

DRUGS (5)
  1. ALEVE CAPLET [Suspect]
     Dosage: 1 DF, BID
     Route: 048
     Dates: start: 201303, end: 201303
  2. BAYER ASPIRIN [Concomitant]
     Dosage: UNK UNK, PRN
  3. ATENOLOL [Concomitant]
  4. HYDRAZIDE [HYDROCHLOROTHIAZIDE] [Concomitant]
  5. LISINOPRIL [Concomitant]

REACTIONS (2)
  - Blood pressure increased [Recovered/Resolved]
  - Drug ineffective [None]
